FAERS Safety Report 12653129 (Version 2)
Quarter: 2016Q3

REPORT INFORMATION
  Report Type: Report from Study
  Country: PT (occurrence: PT)
  Receive Date: 20160815
  Receipt Date: 20160819
  Transmission Date: 20161109
  Serious: Yes (Other)
  Sender: FDA-Public Use
  Company Number: PT-GILEAD-2016-0228378

PATIENT
  Sex: Female

DRUGS (1)
  1. LEDIPASVIR/SOFOSBUVIR [Suspect]
     Active Substance: LEDIPASVIR\SOFOSBUVIR
     Indication: HEPATITIS C
     Dosage: UNK
     Route: 065
     Dates: start: 20150424, end: 20151009

REACTIONS (7)
  - Dizziness [Unknown]
  - Back pain [Unknown]
  - Rash [Unknown]
  - Spinal fracture [Unknown]
  - Asthenia [Unknown]
  - Headache [Unknown]
  - Anaemia [Unknown]
